FAERS Safety Report 7275629-6 (Version None)
Quarter: 2011Q1

REPORT INFORMATION
  Report Type: 
  Country: None (occurrence: None)
  Receive Date: 20110202
  Receipt Date: 20110202
  Transmission Date: 20110831
  Serious: No
  Sender: FDA-Public Use
  Company Number: None

PATIENT
  Sex: Female
  Weight: 74.8435 kg

DRUGS (1)
  1. TRIAD ALCOHOL PREP. PADS [Suspect]
     Indication: INFECTION PROPHYLAXIS
     Dosage: DAILY

REACTIONS (4)
  - PAIN IN EXTREMITY [None]
  - INJECTION SITE SWELLING [None]
  - ERYTHEMA [None]
  - STAPHYLOCOCCAL INFECTION [None]
